FAERS Safety Report 4602454-4 (Version None)
Quarter: 2005Q1

REPORT INFORMATION
  Report Type: 
  Country: None (occurrence: None)
  Receive Date: 20050309
  Receipt Date: 20050224
  Transmission Date: 20050727
  Serious: Yes (Death, Hospitalization)
  Sender: FDA-Public Use
  Company Number: SE-JNJFOC-20050205989

PATIENT
  Age: 89 Year
  Sex: Female

DRUGS (7)
  1. RISPERDAL [Suspect]
     Indication: SENILE DEMENTIA
     Route: 049
  2. ARICEPT [Concomitant]
  3. ACETAMINOPHEN [Concomitant]
  4. BETOLVEX [Concomitant]
  5. PLENDIL [Concomitant]
  6. OXASCAND [Concomitant]
  7. ASPIRIN [Concomitant]

REACTIONS (3)
  - CARDIAC FAILURE [None]
  - CEREBRAL INFARCTION [None]
  - MYOCARDIAL INFARCTION [None]
